FAERS Safety Report 17989142 (Version 2)
Quarter: 2020Q3

REPORT INFORMATION
  Report Type: Report from Study
  Country: IT (occurrence: IT)
  Receive Date: 20200707
  Receipt Date: 20200710
  Transmission Date: 20201103
  Serious: Yes (Hospitalization)
  Sender: FDA-Public Use
  Company Number: IT-PFIZER INC-2020257132

PATIENT
  Age: 52 Year
  Sex: Female
  Weight: 70 kg

DRUGS (2)
  1. LIXIANA [Interacting]
     Active Substance: EDOXABAN TOSYLATE
     Dosage: 60 MG, 1X/DAY
  2. XALKORI [Suspect]
     Active Substance: CRIZOTINIB
     Indication: LUNG NEOPLASM MALIGNANT
     Dosage: 500 MG, 1X/DAY
     Dates: start: 20191204, end: 20200102

REACTIONS (3)
  - Acute hepatic failure [Recovered/Resolved]
  - Drug interaction [Recovered/Resolved]
  - Cholestasis [Recovered/Resolved]

NARRATIVE: CASE EVENT DATE: 20200102
